FAERS Safety Report 8885610 (Version 5)
Quarter: 2013Q1

REPORT INFORMATION
  Report Type: Spontaneous
  Country: US (occurrence: US)
  Receive Date: 20121101
  Receipt Date: 20130211
  Transmission Date: 20140127
  Serious: Yes (Other)
  Sender: FDA-Public Use
  Company Number: US-PFIZER INC-2012267768

PATIENT
  Age: 48 Year
  Sex: Female
  Weight: 43.99 kg

DRUGS (5)
  1. SUTENT [Suspect]
     Indication: NEUROENDOCRINE CARCINOMA
     Dosage: 37.5 MG, DAILY
     Dates: start: 20121027
  2. SUTENT [Suspect]
     Dosage: 25 MG, UNK
     Dates: end: 20130105
  3. CREON [Concomitant]
     Dosage: UNK
  4. SANDOSTATIN [Concomitant]
     Dosage: UNK
  5. PROTONIX [Concomitant]
     Dosage: UNK

REACTIONS (21)
  - Diabetes mellitus [Unknown]
  - Feeling abnormal [Unknown]
  - Feeling of relaxation [Unknown]
  - Sedation [Unknown]
  - Aphthous stomatitis [Unknown]
  - Dysgeusia [Unknown]
  - Anxiety [Unknown]
  - Weight decreased [Unknown]
  - Fatigue [Unknown]
  - Decreased appetite [Unknown]
  - Thyroxine decreased [Unknown]
  - Tri-iodothyronine decreased [Unknown]
  - Insomnia [Unknown]
  - Oedema peripheral [Unknown]
  - Oedema [Unknown]
  - Gait disturbance [Unknown]
  - Malaise [Unknown]
  - Disease progression [Unknown]
  - Neuroendocrine carcinoma [Unknown]
  - Feeling drunk [Unknown]
  - Insomnia [Unknown]
